FAERS Safety Report 21596736 (Version 1)
Quarter: 2022Q4

REPORT INFORMATION
  Report Type: Spontaneous
  Country: CH (occurrence: CH)
  Receive Date: 20221115
  Receipt Date: 20221115
  Transmission Date: 20230113
  Serious: Yes (Hospitalization)
  Sender: FDA-Public Use
  Company Number: CH-NAPPMUNDI-GBR-2022-0102919

PATIENT
  Age: 69 Year
  Sex: Male

DRUGS (21)
  1. OXYCODONE HYDROCHLORIDE [Suspect]
     Active Substance: OXYCODONE HYDROCHLORIDE
     Indication: Product used for unknown indication
     Dosage: 10 MG 1-0-1-0
     Route: 065
     Dates: end: 20220424
  2. QUETIAPINE [Suspect]
     Active Substance: QUETIAPINE
     Indication: Product used for unknown indication
     Dosage: 25 MILLIGRAM
     Route: 048
     Dates: end: 20220224
  3. QUETIAPINE [Suspect]
     Active Substance: QUETIAPINE
     Dosage: 25 MG 0-0-0.5
     Route: 048
     Dates: end: 20220422
  4. LIORESAL [Suspect]
     Active Substance: BACLOFEN
     Indication: Product used for unknown indication
     Dosage: 10 MG 3-0-0-0 AND 25 MG 0-0-0-2
     Route: 048
  5. TIZANIDINE [Suspect]
     Active Substance: TIZANIDINE
     Indication: Product used for unknown indication
     Dosage: 2 MG 1-1-0-0 AND 4 MG 0-0-0-1 O
     Route: 048
  6. CITALOPRAM HYDROBROMIDE [Concomitant]
     Active Substance: CITALOPRAM HYDROBROMIDE
     Indication: Product used for unknown indication
     Dosage: 20 MG 1 - 0 - 0
     Dates: start: 20220422
  7. VITAMIN C BURGERSTEIN [Concomitant]
     Indication: Product used for unknown indication
     Dosage: 500 MG 1 - 0 -0 -0
     Dates: start: 20220422
  8. ZINC GLUCONATE [Concomitant]
     Active Substance: ZINC GLUCONATE
     Indication: Product used for unknown indication
     Dosage: 30 MG 1 - 0 - 0 - 0
     Dates: start: 20220422
  9. SODIUM PICOSULFATE [Concomitant]
     Active Substance: SODIUM PICOSULFATE
     Indication: Product used for unknown indication
     Dosage: 10  DROPS/DAY
     Dates: start: 20220422
  10. VANCOCIN [Concomitant]
     Active Substance: VANCOMYCIN HYDROCHLORIDE
     Indication: Product used for unknown indication
     Dosage: 125 MG 0 -1  - 0 - 1
     Dates: start: 202204, end: 20220422
  11. CALCIUM CARBONATE\CHOLECALCIFEROL [Concomitant]
     Active Substance: CALCIUM CARBONATE\CHOLECALCIFEROL
     Indication: Product used for unknown indication
     Dosage: 500/800 MG/IE 0 - 1 - 0 -0
     Dates: start: 20220422
  12. POLYETHYLENE GLYCOL 3350\POTASSIUM CHLORIDE\SODIUM BICARBONATE\SODIUM [Concomitant]
     Active Substance: POLYETHYLENE GLYCOL 3350\POTASSIUM CHLORIDE\SODIUM BICARBONATE\SODIUM CHLORIDE
     Indication: Product used for unknown indication
     Dosage: 1 SACHET, DAILY
     Dates: start: 20220422
  13. PREDNISONE [Concomitant]
     Active Substance: PREDNISONE
     Indication: Product used for unknown indication
     Dosage: 5 MG 2 - 0 - 0 - 0
     Dates: start: 20220422
  14. DIAZEPAM DESITIN [Concomitant]
     Indication: Product used for unknown indication
     Dosage: 10 MG RECTAL TUBE IN RESERVE RECTALLY UP TO MAX 3X/24H
     Dates: start: 20220422
  15. AMLODIPINE [Concomitant]
     Active Substance: AMLODIPINE BESYLATE
     Indication: Product used for unknown indication
     Dosage: 10 MILLIGRAM AS NECESSARY
     Dates: start: 20220422
  16. FLUIMUCIL [Concomitant]
     Active Substance: ACETYLCYSTEINE
     Indication: Product used for unknown indication
     Dosage: 600 MG
     Dates: start: 20220422
  17. MAXITROL [Concomitant]
     Active Substance: DEXAMETHASONE\NEOMYCIN SULFATE\POLYMYXIN B SULFATE
     Indication: Product used for unknown indication
     Dosage: AS NECESSARY
     Dates: start: 20220422
  18. TOBREX [Concomitant]
     Active Substance: TOBRAMYCIN
     Indication: Product used for unknown indication
     Dosage: UNK
     Dates: start: 20220422
  19. TOBREX [Concomitant]
     Active Substance: TOBRAMYCIN
     Dosage: UNK
  20. DAFALGAN [Concomitant]
     Active Substance: ACETAMINOPHEN
     Indication: Product used for unknown indication
     Dosage: TABL 500 MG.
     Dates: start: 20220422
  21. VIMOVO [Concomitant]
     Active Substance: ESOMEPRAZOLE MAGNESIUM\NAPROXEN
     Indication: Product used for unknown indication
     Dosage: 500MG/20MG
     Dates: start: 20220422

REACTIONS (1)
  - Disturbance in attention [Recovering/Resolving]

NARRATIVE: CASE EVENT DATE: 20220424
